FAERS Safety Report 19070916 (Version 2)
Quarter: 2022Q2

REPORT INFORMATION
  Report Type: Spontaneous
  Country: US (occurrence: US)
  Receive Date: 20210330
  Receipt Date: 20220412
  Transmission Date: 20220721
  Serious: No
  Sender: FDA-Public Use
  Company Number: US-BLUEPRINT MEDICINES CORPORATION-SP-US-2021-000383

PATIENT
  Age: 65 Year
  Sex: Male

DRUGS (2)
  1. AYVAKIT [Suspect]
     Active Substance: AVAPRITINIB
     Indication: Gastrointestinal stromal tumour
     Dosage: TAKE 1/2 A TABLET
     Route: 048
  2. AYVAKIT [Suspect]
     Active Substance: AVAPRITINIB
     Route: 048

REACTIONS (3)
  - Drug intolerance [Unknown]
  - Abdominal discomfort [Recovered/Resolved with Sequelae]
  - Intentional product use issue [Not Recovered/Not Resolved]
